FAERS Safety Report 12703560 (Version 1)
Quarter: 2016Q3

REPORT INFORMATION
  Report Type: Spontaneous
  Country: GB (occurrence: GB)
  Receive Date: 20160831
  Receipt Date: 20160831
  Transmission Date: 20161109
  Serious: Yes (Other)
  Sender: FDA-Public Use
  Company Number: PHHY2016GB117311

PATIENT
  Age: 69 Year
  Sex: Male
  Weight: 78.46 kg

DRUGS (2)
  1. LATANOPROST. [Concomitant]
     Active Substance: LATANOPROST
     Indication: OCULAR HYPERTENSION
     Route: 047
     Dates: start: 201502
  2. BRINZOLAMIDE [Suspect]
     Active Substance: BRINZOLAMIDE
     Indication: OCULAR HYPERTENSION
     Dosage: MORNING AND NIGHT
     Route: 047
     Dates: start: 20151101

REACTIONS (5)
  - Eye discharge [Not Recovered/Not Resolved]
  - Ocular hyperaemia [Not Recovered/Not Resolved]
  - Eyelid margin crusting [Not Recovered/Not Resolved]
  - Vision blurred [Not Recovered/Not Resolved]
  - Hypersensitivity [Not Recovered/Not Resolved]

NARRATIVE: CASE EVENT DATE: 20151101
